FAERS Safety Report 6949622-4 (Version None)
Quarter: 2010Q3

REPORT INFORMATION
  Report Type: 
  Country: None (occurrence: None)
  Receive Date: 20100828
  Receipt Date: 20100104
  Transmission Date: 20110219
  Serious: No
  Sender: FDA-Public Use
  Company Number: US-ABBOTT-10P-163-0617927-00

PATIENT
  Sex: Female
  Weight: 27.24 kg

DRUGS (7)
  1. NIASPAN [Suspect]
     Indication: CORONARY ARTERY DISEASE
     Dates: start: 20091228
  2. NIASPAN [Suspect]
     Indication: BLOOD CHOLESTEROL INCREASED
  3. PLAVIX [Concomitant]
     Indication: CORONARY ARTERY DISEASE
  4. PLAVIX [Concomitant]
     Indication: BLOOD CHOLESTEROL INCREASED
  5. SIMVASTATIN [Concomitant]
     Indication: CORONARY ARTERY DISEASE
  6. SIMVASTATIN [Concomitant]
     Indication: BLOOD CHOLESTEROL INCREASED
  7. TYLENOL (CAPLET) [Concomitant]
     Indication: PAIN

REACTIONS (3)
  - FLUSHING [None]
  - PAIN IN JAW [None]
  - TOOTHACHE [None]
